FAERS Safety Report 5130084-7 (Version None)
Quarter: 2006Q4

REPORT INFORMATION
  Report Type: 
  Country: None (occurrence: None)
  Receive Date: 20061012
  Receipt Date: 20060929
  Transmission Date: 20070319
  Serious: Yes (Other)
  Sender: FDA-Public Use
  Company Number: 6026260

PATIENT
  Age: 82 Year
  Sex: Female

DRUGS (5)
  1. NOTEN (25 MG, TABLET) (ATENOLOL) [Suspect]
     Indication: CARDIOMEGALY
     Dosage: 25,000 MG (25 MG, NOCTE) ORAL
     Route: 048
     Dates: end: 20060918
  2. FOSAMAX [Concomitant]
  3. RESTAVIT (DOXYLAMINE SUCCINATE) [Concomitant]
  4. MOGADON (NITRAZEPAM) [Concomitant]
  5. PRAVASTATIN [Concomitant]

REACTIONS (3)
  - HALLUCINATION, AUDITORY [None]
  - HEARING IMPAIRED [None]
  - TINNITUS [None]
